FAERS Safety Report 20814930 (Version 1)
Quarter: 2022Q2

REPORT INFORMATION
  Report Type: Spontaneous
  Country: US (occurrence: US)
  Receive Date: 20220511
  Receipt Date: 20220511
  Transmission Date: 20220721
  Serious: No
  Sender: FDA-Public Use
  Company Number: US-PFIZER INC-202101259423

PATIENT
  Age: 80 Year
  Sex: Female
  Weight: 60.78 kg

DRUGS (2)
  1. DILANTIN [Suspect]
     Active Substance: PHENYTOIN
     Indication: Seizure
     Dosage: 100MG ONCE A DAY AT NIGHT ONLY
  2. PHENOBARBITAL [Suspect]
     Active Substance: PHENOBARBITAL
     Indication: Seizure
     Dosage: ONCE IN THE MORNING AND ONCE IN THE EVENING

REACTIONS (1)
  - Drug ineffective [Unknown]
